FAERS Safety Report 4918766-0 (Version None)
Quarter: 2006Q1

REPORT INFORMATION
  Report Type: 
  Country: None (occurrence: None)
  Receive Date: 20060222
  Receipt Date: 20051125
  Transmission Date: 20060701
  Serious: Yes (Hospitalization)
  Sender: FDA-Public Use
  Company Number: HQWYE733229NOV05

PATIENT
  Sex: Female

DRUGS (4)
  1. ENBREL [Suspect]
     Indication: RHEUMATOID ARTHRITIS
     Route: 058
     Dates: start: 20050614, end: 20051025
  2. RHEUMATREX [Suspect]
     Dosage: UNKNOWN DOSAGE
     Route: 048
     Dates: start: 20050128, end: 20051101
  3. BUCILLAMINE [Suspect]
     Dosage: UNKNOWN
     Route: 048
     Dates: start: 20041227, end: 20051111
  4. REBAMIPIDE [Suspect]
     Route: 048
     Dates: start: 20041227, end: 20051111

REACTIONS (1)
  - HEPATIC FUNCTION ABNORMAL [None]
